FAERS Safety Report 12142079 (Version 1)
Quarter: 2016Q1

REPORT INFORMATION
  Report Type: Spontaneous
  Country: IT (occurrence: IT)
  Receive Date: 20160303
  Receipt Date: 20160303
  Transmission Date: 20160526
  Serious: Yes (Hospitalization)
  Sender: FDA-Public Use
  Company Number: IT-ABBVIE-16P-083-1569525-00

PATIENT
  Age: 78 Year
  Sex: Female
  Weight: 54 kg

DRUGS (2)
  1. VIEKIRAX [Suspect]
     Active Substance: OMBITASVIR\PARITAPREVIR\RITONAVIR
     Indication: CHRONIC HEPATITIS C
     Route: 048
     Dates: start: 20160112, end: 20160218
  2. EXVIERA [Suspect]
     Active Substance: DASABUVIR
     Indication: CHRONIC HEPATITIS C
     Route: 048
     Dates: start: 20160112, end: 20160218

REACTIONS (6)
  - Urinary tract infection [Unknown]
  - Pruritus generalised [Recovering/Resolving]
  - Pruritus [Unknown]
  - Rash generalised [Recovering/Resolving]
  - Anaemia [Unknown]
  - Rash morbilliform [Recovering/Resolving]

NARRATIVE: CASE EVENT DATE: 20160217
